FAERS Safety Report 7069768-2 (Version None)
Quarter: 2010Q4

REPORT INFORMATION
  Report Type: 
  Country: None (occurrence: None)
  Receive Date: 20101028
  Receipt Date: 20100607
  Transmission Date: 20110411
  Serious: No
  Sender: FDA-Public Use
  Company Number: US-WYE-H15527210

PATIENT
  Sex: Female

DRUGS (6)
  1. EFFEXOR XR [Suspect]
     Indication: DEPRESSION
     Route: 048
     Dates: start: 20040101
  2. EFFEXOR XR [Suspect]
     Route: 048
     Dates: end: 20100501
  3. DEPAKOTE [Suspect]
  4. ABILIFY [Suspect]
     Dosage: UNKNOWN
     Dates: end: 20080401
  5. EFFEXOR [Suspect]
     Indication: DEPRESSION
     Dosage: UNKNOWN
  6. NEURONTIN [Suspect]

REACTIONS (4)
  - DRUG WITHDRAWAL SYNDROME [None]
  - THERAPEUTIC RESPONSE UNEXPECTED [None]
  - WEIGHT DECREASED [None]
  - WEIGHT INCREASED [None]
